FAERS Safety Report 6288939-6 (Version None)
Quarter: 2009Q3

REPORT INFORMATION
  Report Type: 
  Country: None (occurrence: None)
  Receive Date: 20090729
  Receipt Date: 20090722
  Transmission Date: 20100115
  Serious: Yes (Disabling)
  Sender: FDA-Public Use
  Company Number: US-BAYER-200912320BCC

PATIENT
  Age: 68 Year
  Sex: Female
  Weight: 73 kg

DRUGS (1)
  1. ALEVE [Suspect]
     Indication: TENDONITIS
     Route: 048
     Dates: start: 20040101, end: 20040101

REACTIONS (2)
  - ABASIA [None]
  - OEDEMA PERIPHERAL [None]
